FAERS Safety Report 5694256-5 (Version None)
Quarter: 2008Q2

REPORT INFORMATION
  Report Type: 
  Country: None (occurrence: None)
  Receive Date: 20080404
  Receipt Date: 20071218
  Transmission Date: 20081010
  Serious: No
  Sender: FDA-Public Use
  Company Number: US-BAYER-200717196NA

PATIENT
  Sex: Male

DRUGS (1)
  1. MIRENA [Suspect]
     Indication: CONTRACEPTION

REACTIONS (1)
  - GENITAL PAIN [None]
